FAERS Safety Report 15794205 (Version 1)
Quarter: 2019Q1

REPORT INFORMATION
  Report Type: Spontaneous
  Country: CN (occurrence: CN)
  Receive Date: 20190107
  Receipt Date: 20190107
  Transmission Date: 20190417
  Serious: Yes (Hospitalization)
  Sender: FDA-Public Use
  Company Number: CN-PFIZER INC-2019000860

PATIENT
  Age: 79 Year
  Sex: Female

DRUGS (3)
  1. DIFLUCAN [Suspect]
     Active Substance: FLUCONAZOLE
     Indication: THERAPEUTIC PROCEDURE
     Dosage: 200 MG, 1X/DAY
     Route: 048
     Dates: start: 20180920, end: 20180923
  2. TIGECYCLINE. [Concomitant]
     Active Substance: TIGECYCLINE
     Indication: THERAPEUTIC PROCEDURE
     Dosage: 100 MG, 2X/DAY
     Route: 041
     Dates: start: 20180911, end: 20180911
  3. TIGECYCLINE. [Concomitant]
     Active Substance: TIGECYCLINE
     Dosage: 50 MG, 2X/DAY
     Route: 041
     Dates: start: 20180912, end: 20180917

REACTIONS (1)
  - Blood creatine phosphokinase increased [Recovered/Resolved]

NARRATIVE: CASE EVENT DATE: 20180925
